FAERS Safety Report 15337827 (Version 2)
Quarter: 2018Q3

REPORT INFORMATION
  Report Type: Report from Study
  Country: US (occurrence: US)
  Receive Date: 20180831
  Receipt Date: 20180921
  Transmission Date: 20181010
  Serious: Yes (Other)
  Sender: FDA-Public Use
  Company Number: US-ROCHE-2177947

PATIENT
  Sex: Male

DRUGS (6)
  1. CYCLOPHOSPHAMIDE. [Concomitant]
     Active Substance: CYCLOPHOSPHAMIDE
  2. DOXORUBICIN [Concomitant]
     Active Substance: DOXORUBICIN
  3. VINCRISTINE [Concomitant]
     Active Substance: VINCRISTINE
  4. RITUXAN [Suspect]
     Active Substance: RITUXIMAB
     Indication: DIFFUSE LARGE B-CELL LYMPHOMA
     Dosage: LAST DOSE 02/MAR/2018
     Route: 042
     Dates: start: 20171113
  5. RITUXAN [Suspect]
     Active Substance: RITUXIMAB
     Indication: LYMPHADENOPATHY
  6. PREDNISOLONE. [Concomitant]
     Active Substance: PREDNISOLONE

REACTIONS (1)
  - Diffuse large B-cell lymphoma recurrent [Unknown]
